FAERS Safety Report 13056498 (Version 4)
Quarter: 2020Q3

REPORT INFORMATION
  Report Type: Report from Study
  Country: US (occurrence: US)
  Receive Date: 20161222
  Receipt Date: 20170918
  Transmission Date: 20201104
  Serious: Yes (Hospitalization)
  Sender: FDA-Public Use
  Company Number: US-ROCHE-1838808

PATIENT
  Age: 56 Year
  Sex: Male
  Weight: 124.5 kg

DRUGS (32)
  1. POLATUZUMAB VEDOTIN. [Suspect]
     Active Substance: POLATUZUMAB VEDOTIN
     Indication: DIFFUSE LARGE B-CELL LYMPHOMA
     Dosage: DATE AND START TIME OF MOST RECENT DOSE (236.5 MG) OF POLATUZUMAB VEDOTIN PRIOR TO AE ONSET: 24/MAY/
     Route: 042
     Dates: start: 20160225
  2. BENDAMUSTINE [Suspect]
     Active Substance: BENDAMUSTINE
     Indication: DIFFUSE LARGE B-CELL LYMPHOMA
     Dosage: DATE AND START TIME OF MOST RECENT DOSE (240 MG) OF BENDAMUSTINE PRIOR TO AE ONSET: 25/MAY/2016 (08:
     Route: 042
     Dates: start: 20160225
  3. ESOMEPRAZOLE. [Concomitant]
     Active Substance: ESOMEPRAZOLE MAGNESIUM
     Indication: PROPHYLAXIS
     Dosage: INDICATION: DYSPHAGIA PROPHYLAXIS ASPIRATE
     Route: 065
     Dates: start: 20160721, end: 20160801
  4. NORCO [Concomitant]
     Active Substance: ACETAMINOPHEN\HYDROCODONE BITARTRATE
     Indication: PYREXIA
     Route: 065
     Dates: start: 20160729, end: 20160731
  5. RITUXIMAB. [Suspect]
     Active Substance: RITUXIMAB
     Indication: DIFFUSE LARGE B-CELL LYMPHOMA
     Dosage: DATE AND START TIME OF MOST RECENT DOSE (1001.25 MG) OF RITUXIMAB PRIOR TO AE ONSET: 24/MAY/2016 (10
     Route: 042
     Dates: start: 20160224
  6. AMBIEN [Concomitant]
     Active Substance: ZOLPIDEM TARTRATE
     Indication: INSOMNIA
     Route: 065
     Dates: start: 20160405
  7. POTASSIUM CHLORIDE. [Concomitant]
     Active Substance: POTASSIUM CHLORIDE
     Route: 065
     Dates: start: 20160726, end: 20160726
  8. BACITRACIN. [Concomitant]
     Active Substance: BACITRACIN
     Indication: PROPHYLAXIS
     Route: 065
     Dates: start: 20160809, end: 20160813
  9. METRONIDAZOLE. [Concomitant]
     Active Substance: METRONIDAZOLE
     Indication: PROPHYLAXIS
     Dosage: INDICATION: PROPHYLAXIS NG TUBE
     Route: 065
     Dates: start: 20160801, end: 20160802
  10. POTASSIUM CHLORIDE. [Concomitant]
     Active Substance: POTASSIUM CHLORIDE
     Indication: BLOOD POTASSIUM DECREASED
     Route: 065
     Dates: start: 20160614
  11. POTASSIUM CHLORIDE. [Concomitant]
     Active Substance: POTASSIUM CHLORIDE
     Route: 065
     Dates: start: 20160801, end: 20160801
  12. POTASSIUM CHLORIDE. [Concomitant]
     Active Substance: POTASSIUM CHLORIDE
     Route: 065
     Dates: start: 20160724, end: 20160724
  13. CEFEPIME [Concomitant]
     Active Substance: CEFEPIME HYDROCHLORIDE
     Indication: PYREXIA
     Route: 065
     Dates: start: 20160731, end: 20160803
  14. ZOFRAN [Concomitant]
     Active Substance: ONDANSETRON HYDROCHLORIDE
     Indication: NAUSEA
     Route: 065
     Dates: start: 20160405
  15. CALCIUM GLUCONATE. [Concomitant]
     Active Substance: CALCIUM GLUCONATE
     Indication: TACHYCARDIA
     Route: 065
     Dates: start: 20160731, end: 20160731
  16. HYDROMORPHONE [Concomitant]
     Active Substance: HYDROMORPHONE
     Indication: PROPHYLAXIS
     Dosage: INDICATION: BRAIN BIOPSY PAIN PROPHYLAXIS
     Route: 065
     Dates: start: 20160729, end: 20160729
  17. POTASSIUM CHLORIDE. [Concomitant]
     Active Substance: POTASSIUM CHLORIDE
     Route: 065
     Dates: start: 20160727, end: 20160727
  18. ALTEPLASE. [Concomitant]
     Active Substance: ALTEPLASE
     Indication: PROPHYLAXIS
     Route: 065
     Dates: start: 20160810, end: 20160810
  19. BACLOFEN. [Concomitant]
     Active Substance: BACLOFEN
     Indication: HICCUPS
     Route: 065
     Dates: start: 20160725, end: 20160725
  20. ESOMEPRAZOLE. [Concomitant]
     Active Substance: ESOMEPRAZOLE MAGNESIUM
     Dosage: INDICATION: DYSPHAGIA PROPHYLAXIS NG TUBE
     Route: 065
     Dates: start: 20160807, end: 20160816
  21. FENTANYL. [Concomitant]
     Active Substance: FENTANYL
     Indication: PROPHYLAXIS
     Dosage: INDICATION: SEDATION PROPHYLAXIS IR GASTROTOMY
     Route: 065
     Dates: start: 20160809, end: 20160809
  22. FENTANYL. [Concomitant]
     Active Substance: FENTANYL
     Dosage: INDICATION: BRAIN BIOPSY PAIN PROPHYLAXIS
     Route: 065
     Dates: start: 20160729, end: 20160729
  23. NORCO [Concomitant]
     Active Substance: ACETAMINOPHEN\HYDROCODONE BITARTRATE
     Indication: CHILLS
  24. POTASSIUM CHLORIDE. [Concomitant]
     Active Substance: POTASSIUM CHLORIDE
     Route: 065
     Dates: start: 20160730, end: 20160730
  25. MAGNESIUM SULFATE. [Concomitant]
     Active Substance: MAGNESIUM SULFATE
     Indication: TACHYCARDIA
     Route: 065
     Dates: start: 20160730, end: 20160731
  26. HEPARIN FLUSH [Concomitant]
     Active Substance: HEPARIN SODIUM
     Indication: PROPHYLAXIS
     Dosage: INDICATION: LINE FLUSHING PROPHYLAXIS
     Route: 065
     Dates: start: 20160812, end: 20160815
  27. MEDROL [Concomitant]
     Active Substance: METHYLPREDNISOLONE
     Indication: DECREASED APPETITE
     Route: 065
     Dates: start: 20160608
  28. ACETAMINOPHEN. [Concomitant]
     Active Substance: ACETAMINOPHEN
     Indication: PYREXIA
     Route: 065
     Dates: start: 20160727, end: 20160727
  29. ACETAMINOPHEN. [Concomitant]
     Active Substance: ACETAMINOPHEN
     Indication: CHILLS
     Route: 065
     Dates: start: 20160730, end: 20160731
  30. POTASSIUM CHLORIDE. [Concomitant]
     Active Substance: POTASSIUM CHLORIDE
     Route: 065
     Dates: start: 20160723, end: 20160723
  31. CALCIUM CARBONATE. [Concomitant]
     Active Substance: CALCIUM CARBONATE
     Indication: HYPOCALCAEMIA
     Route: 065
     Dates: start: 20160726, end: 20160726
  32. MIDAZOLAM ROCHE UNSPEC [Concomitant]
     Active Substance: MIDAZOLAM HYDROCHLORIDE
     Indication: PROPHYLAXIS
     Dosage: INDICATION: SEDATION PROPHYLAXIS IR GASTROTOMY
     Route: 065
     Dates: start: 20160809, end: 20160809

REACTIONS (3)
  - Vocal cord paralysis [Recovered/Resolved]
  - Cerebral toxoplasmosis [Recovered/Resolved]
  - Pneumonia cytomegaloviral [Recovered/Resolved]

NARRATIVE: CASE EVENT DATE: 20160720
